FAERS Safety Report 14784378 (Version 2)
Quarter: 2018Q2

REPORT INFORMATION
  Report Type: Spontaneous
  Country: FR (occurrence: FR)
  Receive Date: 20180420
  Receipt Date: 20180511
  Transmission Date: 20180711
  Serious: Yes (Other)
  Sender: FDA-Public Use
  Company Number: FR-GLENMARK PHARMACEUTICALS-2018GMK034534

PATIENT
  Age: 77 Year
  Sex: Male

DRUGS (3)
  1. VORICONAZOLE. [Suspect]
     Active Substance: VORICONAZOLE
     Indication: BRONCHOPULMONARY ASPERGILLOSIS
     Dosage: 200 MG, BID
     Route: 065
  2. VORICONAZOLE. [Suspect]
     Active Substance: VORICONAZOLE
     Dosage: 100 MG, QD
     Route: 065
  3. VORICONAZOLE. [Suspect]
     Active Substance: VORICONAZOLE
     Dosage: 200 MG, QD
     Route: 065

REACTIONS (6)
  - Hallucination, visual [Recovered/Resolved]
  - Retinal toxicity [Recovering/Resolving]
  - Vision blurred [Recovering/Resolving]
  - Xanthopsia [Recovering/Resolving]
  - Dyschromatopsia [Recovering/Resolving]
  - Visual field defect [Recovering/Resolving]
